FAERS Safety Report 12914060 (Version 1)
Quarter: 2016Q4

REPORT INFORMATION
  Report Type: Spontaneous
  Country: US (occurrence: US)
  Receive Date: 20161105
  Receipt Date: 20161105
  Transmission Date: 20170207
  Serious: No
  Sender: FDA-Public Use
  Company Number: US-AUROBINDO-AUR-APL-2015-09487

PATIENT
  Age: 59 Year
  Sex: Female
  Weight: 68 kg

DRUGS (1)
  1. METOPROLOL TARTRATE TABLETS USP 25 MG [Suspect]
     Active Substance: METOPROLOL TARTRATE
     Indication: MIGRAINE
     Dosage: 25 MG, DAILY
     Route: 065

REACTIONS (2)
  - Off label use [Unknown]
  - Migraine [Unknown]
